FAERS Safety Report 17451885 (Version 1)
Quarter: 2020Q1

REPORT INFORMATION
  Report Type: Spontaneous
  Country: FR (occurrence: FR)
  Receive Date: 20200224
  Receipt Date: 20200224
  Transmission Date: 20200409
  Serious: Yes (Other)
  Sender: FDA-Public Use
  Company Number: FR-PFIZER INC-2020075085

PATIENT
  Age: 20 Year
  Sex: Male
  Weight: 78.6 kg

DRUGS (5)
  1. VINCRISTINE HOSPIRA [Suspect]
     Active Substance: VINCRISTINE
     Indication: T-CELL TYPE ACUTE LEUKAEMIA
     Dosage: 2 MG, UNK (2 MG ON 26DEC2019 AND 01JAN2010)
     Route: 041
     Dates: start: 20191226, end: 20200101
  2. ATRIANCE [Suspect]
     Active Substance: NELARABINE
     Indication: T-CELL TYPE ACUTE LEUKAEMIA
     Dosage: 650 MG/M2, UNK
     Route: 041
     Dates: start: 20191227, end: 20191231
  3. CYTARABINE SANDOZ [Suspect]
     Active Substance: CYTARABINE
     Indication: T-CELL TYPE ACUTE LEUKAEMIA
     Dosage: 3900 MG, 1X/DAY
     Route: 041
     Dates: start: 20191231, end: 20200101
  4. METHOTREXATE MYLAN [Suspect]
     Active Substance: METHOTREXATE SODIUM
     Indication: T-CELL TYPE ACUTE LEUKAEMIA
     Dosage: 195 MG THEN 1750MG
     Route: 041
     Dates: start: 20191227, end: 20191228
  5. ENDOXAN [CYCLOPHOSPHAMIDE MONOHYDRATE] [Suspect]
     Active Substance: CYCLOPHOSPHAMIDE
     Indication: T-CELL TYPE ACUTE LEUKAEMIA
     Dosage: 390 MG THEN 2X780 MG
     Route: 041
     Dates: start: 20191228, end: 20191230

REACTIONS (2)
  - Dysaesthesia [Recovering/Resolving]
  - Muscular weakness [Recovering/Resolving]

NARRATIVE: CASE EVENT DATE: 20200108
